FAERS Safety Report 4735648-8 (Version None)
Quarter: 2005Q3

REPORT INFORMATION
  Report Type: 
  Country: None (occurrence: None)
  Receive Date: 20050805
  Receipt Date: 20050725
  Transmission Date: 20060218
  Serious: Yes (Death, Congenital Anomaly)
  Sender: FDA-Public Use
  Company Number: PL-GLAXOSMITHKLINE-B0389396B

PATIENT

DRUGS (1)
  1. LAMICTAL [Suspect]
     Indication: EPILEPSY
     Dosage: 200MG PER DAY
     Dates: start: 20030101

REACTIONS (3)
  - CONGENITAL ANOMALY [None]
  - DIAPHRAGMATIC HERNIA [None]
  - STILLBIRTH [None]
